FAERS Safety Report 6078504-8 (Version None)
Quarter: 2009Q1

REPORT INFORMATION
  Report Type: 
  Country: None (occurrence: None)
  Receive Date: 20090211
  Receipt Date: 20090211
  Transmission Date: 20090719
  Serious: No
  Sender: FDA-Public Use
  Company Number: None

PATIENT
  Age: 27 Year
  Sex: Female
  Weight: 54.4316 kg

DRUGS (3)
  1. CIPRO [Suspect]
     Indication: BARTHOLIN'S CYST
     Dosage: 500MG ONE A DAY PO
     Route: 048
     Dates: start: 20081208, end: 20081214
  2. CIPRO [Suspect]
     Indication: LYMPHADENOPATHY
     Dosage: 500MG ONE A DAY PO
     Route: 048
     Dates: start: 20081208, end: 20081214
  3. LEVAQUIN [Suspect]
     Dosage: 500MG TWICE A DAY PO
     Route: 048
     Dates: start: 20090107, end: 20090114

REACTIONS (12)
  - ANXIETY [None]
  - ARTHRALGIA [None]
  - FEAR [None]
  - FEELING ABNORMAL [None]
  - GAIT DISTURBANCE [None]
  - INSOMNIA [None]
  - MIDDLE INSOMNIA [None]
  - NIGHT SWEATS [None]
  - PALPITATIONS [None]
  - SURGERY [None]
  - SYSTEMIC LUPUS ERYTHEMATOSUS [None]
  - TENDON RUPTURE [None]
